FAERS Safety Report 23135115 (Version 1)
Quarter: 2023Q4

REPORT INFORMATION
  Report Type: Spontaneous
  Country: US (occurrence: None)
  Receive Date: 20231101
  Receipt Date: 20231101
  Transmission Date: 20240110
  Serious: Yes (Death)
  Sender: FDA-Public Use
  Company Number: None

PATIENT
  Age: 68 Year
  Sex: Male
  Weight: 60.3 kg

DRUGS (11)
  1. REVLIMID [Suspect]
     Active Substance: LENALIDOMIDE
     Indication: Plasma cell myeloma
     Dosage: FREQUENCY : DAILY;?
     Route: 048
     Dates: start: 20210408, end: 20231020
  2. acyclovir 200 mg capsule [Concomitant]
  3. darbepoetin alfa 60 mcg/0.3 mL in polysorbate injection syringe [Concomitant]
  4. hydrocortisone 2.5 % lotion [Concomitant]
  5. METOPROLOL TARTRATE [Concomitant]
     Active Substance: METOPROLOL TARTRATE
  6. Miralax 17 gram oral powder packet [Concomitant]
  7. sevelamer carbonate 800 mg tablet [Concomitant]
  8. FAMOTIDINE [Concomitant]
     Active Substance: FAMOTIDINE
  9. Slow-Mag 71.5 mg tablet,delayed release [Concomitant]
  10. calcitriol 0.25 mcg capsule [Concomitant]
  11. TAMSULOSIN [Concomitant]
     Active Substance: TAMSULOSIN

REACTIONS (1)
  - Death [None]

NARRATIVE: CASE EVENT DATE: 20231020
